FAERS Safety Report 10185252 (Version 1)
Quarter: 2014Q2

REPORT INFORMATION
  Report Type: Spontaneous
  Country: US (occurrence: None)
  Receive Date: 20140520
  Receipt Date: 20140520
  Transmission Date: 20141212
  Serious: Yes (Other)
  Sender: FDA-Public Use
  Company Number: None

PATIENT
  Age: 55 Year
  Sex: Female
  Weight: 45.36 kg

DRUGS (12)
  1. LEVOFLOXACIN 500 MG [Suspect]
     Indication: UPPER RESPIRATORY TRACT INFECTION
     Dosage: 1 TABLET
     Route: 048
     Dates: start: 20140401, end: 20140404
  2. LEVOFLOXACIN 500 MG [Suspect]
     Indication: DRUG RESISTANCE
     Dosage: 1 TABLET
     Route: 048
     Dates: start: 20140401, end: 20140404
  3. CLARITIN [Concomitant]
  4. RESTASIS [Concomitant]
  5. CALCIUM [Concomitant]
  6. VITAMIN D [Concomitant]
  7. MULTIVITAMIN CENTRUM SILVER [Concomitant]
  8. CETIRIZINE [Concomitant]
  9. AURALGAN [Concomitant]
  10. MAGNESIUM [Concomitant]
  11. VITAMIN K [Concomitant]
  12. FERRALET 90 [Concomitant]

REACTIONS (5)
  - Tendon pain [None]
  - Oedema peripheral [None]
  - Bursitis [None]
  - Peripheral swelling [None]
  - Oedema peripheral [None]
